FAERS Safety Report 22191845 (Version 3)
Quarter: 2023Q2

REPORT INFORMATION
  Report Type: Spontaneous
  Country: US (occurrence: US)
  Receive Date: 20230410
  Receipt Date: 20230517
  Transmission Date: 20230722
  Serious: No
  Sender: FDA-Public Use
  Company Number: US-PFIZER INC-PV202300048666

PATIENT
  Age: 67 Year
  Sex: Female

DRUGS (2)
  1. GENOTROPIN [Suspect]
     Active Substance: SOMATROPIN
     Indication: Neoplasm
     Dosage: 0.3 MG, DAILY
     Dates: end: 20230428
  2. GENOTROPIN [Suspect]
     Active Substance: SOMATROPIN
     Indication: Cerebrovascular accident

REACTIONS (4)
  - Device use issue [Unknown]
  - Drug dose omission by device [Unknown]
  - Off label use [Unknown]
  - Device information output issue [Unknown]
